FAERS Safety Report 11570075 (Version 1)
Quarter: 2015Q3

REPORT INFORMATION
  Report Type: Spontaneous
  Country: US (occurrence: None)
  Receive Date: 20150928
  Receipt Date: 20150928
  Transmission Date: 20151125
  Serious: Yes (Other)
  Sender: FDA-Public Use
  Company Number: None

PATIENT
  Age: 65 Year
  Sex: Female
  Weight: 92.99 kg

DRUGS (11)
  1. CALTRATE [Suspect]
     Active Substance: CALCIUM CARBONATE
  2. VITAMIN D3 [Suspect]
     Active Substance: CHOLECALCIFEROL
  3. NEXIUM [Concomitant]
     Active Substance: ESOMEPRAZOLE MAGNESIUM
  4. POTASSIUM [Concomitant]
     Active Substance: POTASSIUM
  5. OMEGA 3-6-9 [Concomitant]
     Active Substance: FISH OIL
  6. CRESTOR [Concomitant]
     Active Substance: ROSUVASTATIN CALCIUM
  7. PRADAXA [Suspect]
     Active Substance: DABIGATRAN ETEXILATE MESYLATE
     Indication: ATRIAL FIBRILLATION
     Dosage: 1 PILL
     Route: 048
     Dates: start: 201410
  8. MAGNESIUM OXIDE. [Concomitant]
     Active Substance: MAGNESIUM OXIDE
  9. CARDIZEM CD [Concomitant]
     Active Substance: DILTIAZEM HYDROCHLORIDE
  10. LASIX [Concomitant]
     Active Substance: FUROSEMIDE
  11. CRANBERRY CAPS [Concomitant]

REACTIONS (4)
  - Therapy cessation [None]
  - Gastrooesophageal reflux disease [None]
  - Blood viscosity increased [None]
  - Cholelithiasis [None]

NARRATIVE: CASE EVENT DATE: 20140610
